FAERS Safety Report 5379538-9 (Version None)
Quarter: 2007Q3

REPORT INFORMATION
  Report Type: 
  Country: None (occurrence: None)
  Receive Date: 20070703
  Receipt Date: 20070621
  Transmission Date: 20080115
  Serious: Yes (Hospitalization)
  Sender: FDA-Public Use
  Company Number: 07US000896

PATIENT
  Age: 16 Year
  Sex: Female

DRUGS (5)
  1. LITHOBID [Suspect]
     Dosage: SEE IMAGE
     Route: 048
     Dates: start: 20060101, end: 20061201
  2. LITHOBID [Suspect]
     Dosage: SEE IMAGE
     Route: 048
     Dates: start: 20061201, end: 20070529
  3. LITHOBID [Suspect]
     Dosage: SEE IMAGE
     Route: 048
     Dates: start: 20060101
  4. LITHOBID [Suspect]
     Dosage: SEE IMAGE
     Route: 048
     Dates: start: 20070530
  5. LEVOTHYROXINE SODIUM [Concomitant]

REACTIONS (6)
  - BLOOD PHOSPHORUS DECREASED [None]
  - BLOOD THYROID STIMULATING HORMONE INCREASED [None]
  - DIARRHOEA [None]
  - MANIA [None]
  - RAYNAUD'S PHENOMENON [None]
  - THYROID DISORDER [None]
